FAERS Safety Report 23463651 (Version 2)
Quarter: 2024Q1

REPORT INFORMATION
  Report Type: Report from Study
  Country: US (occurrence: US)
  Receive Date: 20240131
  Receipt Date: 20240201
  Transmission Date: 20240410
  Serious: No
  Sender: FDA-Public Use
  Company Number: US-ABBVIE-5608193

PATIENT
  Age: 31 Year
  Sex: Female
  Weight: 93 kg

DRUGS (5)
  1. HUMIRA [Suspect]
     Active Substance: ADALIMUMAB
     Indication: Crohn^s disease
     Dosage: FORM STRENGTH: 40 MILLIGRAM
     Route: 058
     Dates: start: 202309
  2. HUMIRA [Suspect]
     Active Substance: ADALIMUMAB
     Dosage: LAST ADMIN DATE 2023
     Route: 058
     Dates: start: 20230824
  3. TRULANCE [Concomitant]
     Active Substance: PLECANATIDE
     Indication: Gastrointestinal motility disorder
  4. NORETHINDRONE [Concomitant]
     Active Substance: NORETHINDRONE
     Indication: Endometriosis
  5. PERCOCET [Concomitant]
     Active Substance: ACETAMINOPHEN\OXYCODONE HYDROCHLORIDE
     Indication: Pain

REACTIONS (7)
  - Decreased appetite [Not Recovered/Not Resolved]
  - Haemangioma of liver [Not Recovered/Not Resolved]
  - Decreased appetite [Not Recovered/Not Resolved]
  - Irritable bowel syndrome [Not Recovered/Not Resolved]
  - Nausea [Not Recovered/Not Resolved]
  - Vomiting [Not Recovered/Not Resolved]
  - Fatigue [Recovered/Resolved]

NARRATIVE: CASE EVENT DATE: 20240101
